FAERS Safety Report 9375808 (Version 1)
Quarter: 2013Q2

REPORT INFORMATION
  Report Type: Spontaneous
  Country: US (occurrence: US)
  Receive Date: 20130628
  Receipt Date: 20130628
  Transmission Date: 20140414
  Serious: No
  Sender: FDA-Public Use
  Company Number: US-US-EMD SERONO, INC.-7022288

PATIENT
  Sex: Female
  Weight: 65 kg

DRUGS (1)
  1. REBIF [Suspect]
     Indication: MULTIPLE SCLEROSIS
     Route: 058
     Dates: start: 20100730

REACTIONS (5)
  - Alopecia [Unknown]
  - Abdominal pain upper [Recovered/Resolved]
  - Hepatic enzyme increased [Recovered/Resolved]
  - Influenza like illness [Unknown]
  - Injection site reaction [Unknown]
